FAERS Safety Report 22225067 (Version 1)
Quarter: 2023Q2

REPORT INFORMATION
  Report Type: Spontaneous
  Country: ES (occurrence: ES)
  Receive Date: 20230418
  Receipt Date: 20230418
  Transmission Date: 20230721
  Serious: Yes (Other)
  Sender: FDA-Public Use
  Company Number: ES-DSJP-DSE-2023-114525

PATIENT
  Age: 45 Year
  Sex: Male

DRUGS (4)
  1. OLMESARTAN MEDOXOMIL [Suspect]
     Active Substance: OLMESARTAN MEDOXOMIL
     Indication: Hypertension
     Dosage: UNK
     Route: 065
  2. TOLVAPTAN [Suspect]
     Active Substance: TOLVAPTAN
     Indication: Congenital cystic kidney disease
     Dosage: 45+15 MG (FIRST MONTH)
     Route: 065
     Dates: start: 201803
  3. TOLVAPTAN [Suspect]
     Active Substance: TOLVAPTAN
     Dosage: 60+30 MG (SECOND MONTH)
     Route: 065
  4. TOLVAPTAN [Suspect]
     Active Substance: TOLVAPTAN
     Dosage: 90+30 MG (MAXIMUM DOSE)
     Route: 065
     Dates: start: 201806

REACTIONS (1)
  - Hepatotoxicity [Recovered/Resolved]
